FAERS Safety Report 10769717 (Version 2)
Quarter: 2015Q1

REPORT INFORMATION
  Report Type: Spontaneous
  Country: US (occurrence: US)
  Receive Date: 20150206
  Receipt Date: 20150206
  Transmission Date: 20150721
  Serious: Yes (Death, Hospitalization, Other)
  Sender: FDA-Public Use
  Company Number: PHHY2015US013368

PATIENT
  Age: 7 Year
  Sex: Male

DRUGS (7)
  1. MONTELUKAST [Concomitant]
     Active Substance: MONTELUKAST SODIUM
     Indication: PRODUCT USED FOR UNKNOWN INDICATION
     Route: 065
  2. ONDANSETRON [Concomitant]
     Active Substance: ONDANSETRON
     Indication: PRODUCT USED FOR UNKNOWN INDICATION
     Route: 065
  3. IBUPROFEN. [Concomitant]
     Active Substance: IBUPROFEN
     Indication: PYREXIA
     Route: 065
  4. FENRETINIDE [Interacting]
     Active Substance: FENRETINIDE
     Indication: NEUROBLASTOMA
     Dosage: 1110 MG/M2, QD
     Route: 042
     Dates: start: 201002
  5. PARACETAMOL [Interacting]
     Active Substance: ACETAMINOPHEN
     Indication: PYREXIA
     Dosage: 10 MG/KG, Q4H
     Route: 065
  6. PARACETAMOL [Interacting]
     Active Substance: ACETAMINOPHEN
     Dosage: 15 MG/KG, Q4H
     Route: 065
  7. CEFTRIAXONE. [Suspect]
     Active Substance: CEFTRIAXONE
     Indication: PRODUCT USED FOR UNKNOWN INDICATION
     Route: 042

REACTIONS (35)
  - Abdominal pain [Unknown]
  - Drug eruption [Unknown]
  - Parapsoriasis [Unknown]
  - Circulatory collapse [Unknown]
  - Coagulopathy [Unknown]
  - Abdominal distension [Unknown]
  - Constipation [Unknown]
  - Nephropathy toxic [Unknown]
  - Anuria [Unknown]
  - Pleural effusion [Unknown]
  - Atelectasis [Unknown]
  - Epistaxis [Unknown]
  - Pyrexia [Unknown]
  - Hepatomegaly [Unknown]
  - Hypophagia [Unknown]
  - Urine output decreased [Unknown]
  - Skin haemorrhage [Unknown]
  - Muscle necrosis [Unknown]
  - Periportal oedema [Unknown]
  - Generalised oedema [Unknown]
  - Hypotension [Unknown]
  - Blister [Unknown]
  - Headache [Unknown]
  - Hepatocellular injury [Unknown]
  - Metabolic acidosis [Unknown]
  - Rash erythematous [Unknown]
  - Abdominal wall haemorrhage [Unknown]
  - Hepatic failure [Fatal]
  - Rash macular [Unknown]
  - Mental status changes [Unknown]
  - Mucosal haemorrhage [Unknown]
  - Benign intracranial hypertension [Unknown]
  - Cholestasis [Unknown]
  - Drug interaction [Fatal]
  - Skin exfoliation [Unknown]
